FAERS Safety Report 25272679 (Version 3)
Quarter: 2025Q3

REPORT INFORMATION
  Report Type: Spontaneous
  Country: US (occurrence: US)
  Receive Date: 20250506
  Receipt Date: 20250702
  Transmission Date: 20251021
  Serious: Yes (Other)
  Sender: ALVOGEN
  Company Number: US-ALVOGEN-2025097858

PATIENT
  Sex: Female

DRUGS (2)
  1. LEVOTHYROXINE [Suspect]
     Active Substance: LEVOTHYROXINE
     Indication: Hypothyroidism
  2. VITAMINS [Suspect]
     Active Substance: VITAMINS
     Indication: Vitamin supplementation

REACTIONS (5)
  - Neuropathy peripheral [Unknown]
  - Reaction to excipient [Unknown]
  - Paraesthesia [Recovered/Resolved]
  - Drug interaction [Unknown]
  - Product physical issue [Unknown]
